FAERS Safety Report 6941395-4 (Version None)
Quarter: 2010Q3

REPORT INFORMATION
  Report Type: 
  Country: None (occurrence: None)
  Receive Date: 20100825
  Receipt Date: 20100811
  Transmission Date: 20110219
  Serious: Yes (Hospitalization, Other)
  Sender: FDA-Public Use
  Company Number: PHEH2008US09306

PATIENT
  Sex: Female

DRUGS (88)
  1. AREDIA [Suspect]
     Dosage: UNK
  2. ZOMETA [Suspect]
     Dosage: EVERY 4 WEEKS
     Dates: end: 20060701
  3. MIACALCIN [Concomitant]
  4. SYNTHROID [Concomitant]
     Dosage: 125 MCG, DAILY
  5. VITAMIN D [Concomitant]
     Dosage: 50000 IU, BID
  6. NEURONTIN [Concomitant]
     Dosage: 400 MG, QID
  7. DEXAMETHASONE [Concomitant]
     Dosage: 4 MG, 10 TABS WEEKLY
  8. REVLIMID [Concomitant]
     Dosage: 25 MG, DAILY
  9. BACTRIM [Concomitant]
     Dosage: 800MG-160MG, BID
  10. MELOXICAM [Concomitant]
     Dosage: 7.5 MG, DAILY
  11. CORTEF                                  /CAN/ [Concomitant]
     Dosage: 10 MG, BID
  12. ZITHROMAX [Concomitant]
     Dosage: 500 MG, DAILY
  13. DECADRON [Concomitant]
     Dosage: 4 MG, QID
  14. POTASSIUM [Concomitant]
     Dosage: 40 MEQ, UNK
  15. INFLUENZA VACCINE [Concomitant]
  16. ESTRADIOL [Concomitant]
  17. EFFEXOR [Concomitant]
  18. PROVIGIL [Concomitant]
  19. FOLIC ACID [Concomitant]
  20. K-DUR [Concomitant]
  21. LORAZEPAM [Concomitant]
  22. SIMVASTATIN [Concomitant]
  23. PROTONIX [Concomitant]
  24. LEXAPRO [Concomitant]
  25. QUESTRAN [Concomitant]
  26. PRILOSEC [Concomitant]
  27. DURAGESIC-100 [Concomitant]
  28. COUMADIN [Concomitant]
  29. ZANAFLEX [Concomitant]
  30. LASIX [Concomitant]
  31. LEVSINEX [Concomitant]
  32. XANAX [Concomitant]
  33. FLONASE [Concomitant]
  34. CARISOPRODOL [Concomitant]
  35. ROXICODONE [Concomitant]
  36. PROCRIT                            /00909301/ [Concomitant]
  37. CELEBREX [Concomitant]
  38. BLOOD TRANSFUSION, AUXILIARY PRODUCTS [Concomitant]
  39. LABETALOL HCL [Concomitant]
  40. ASPIRIN [Concomitant]
  41. CALCIUM CARBONATE [Concomitant]
  42. PEPCID [Concomitant]
  43. APAP TAB [Concomitant]
  44. MAGNESIUM SULFATE [Concomitant]
  45. LOMOTIL [Concomitant]
  46. FLAGYL [Concomitant]
  47. POTASSIUM PHOSPHATE DIBASIC [Concomitant]
  48. HEPARIN [Concomitant]
  49. NIPRIDE [Concomitant]
  50. APRESOLINE [Concomitant]
  51. BENADRYL ^ACHE^ [Concomitant]
  52. ZYPREXA [Concomitant]
  53. PHENERGAN ^AVENTIS PHARMA^ [Concomitant]
  54. REGLAN [Concomitant]
  55. VITAMIN B1 TAB [Concomitant]
  56. TUMS [Concomitant]
  57. IMODIUM [Concomitant]
  58. FENTANYL CITRATE [Concomitant]
  59. POTASSIUM CHLORIDE [Concomitant]
  60. SODIUM CHLORIDE [Concomitant]
  61. PROTONIX [Concomitant]
  62. ESTRACE [Concomitant]
  63. MULTI-VITAMINS [Concomitant]
  64. DILAUDID [Concomitant]
  65. MAGNESIUM CITRATE [Concomitant]
  66. AMBIEN [Concomitant]
  67. MILK OF MAGNESIA TAB [Concomitant]
  68. CORTEF                             /00028601/ [Concomitant]
  69. TOPROL-XL [Concomitant]
  70. DEMADEX [Concomitant]
  71. LEVAQUIN [Concomitant]
  72. OSCAL [Concomitant]
  73. CALCIUM GLUCONATE [Concomitant]
  74. CLONAZEPAM [Concomitant]
  75. HYDROCORTISONE [Concomitant]
  76. REMERON [Concomitant]
  77. CYANOCOBALAMIN [Concomitant]
  78. SANCTURA [Concomitant]
  79. BACTRIM DS [Concomitant]
  80. COUMADIN [Concomitant]
  81. TYLOX [Concomitant]
  82. GENTAMICIN [Concomitant]
  83. RIFAMPIN [Concomitant]
  84. ZYVOX [Concomitant]
  85. HUMULIN R [Concomitant]
  86. ZOFRAN [Concomitant]
  87. PREMARIN [Concomitant]
  88. VOLTAREN                           /00372303/ [Concomitant]

REACTIONS (100)
  - ABDOMINAL PAIN UPPER [None]
  - ACQUIRED PORPHYRIA [None]
  - ANAEMIA [None]
  - ANHEDONIA [None]
  - ANXIETY [None]
  - APLASTIC ANAEMIA [None]
  - ASTHMA [None]
  - BACTERAEMIA [None]
  - BLOOD GLUCOSE INCREASED [None]
  - BONE DISORDER [None]
  - BONE FRAGMENTATION [None]
  - BREAST CANCER RECURRENT [None]
  - CAECITIS [None]
  - CANDIDIASIS [None]
  - CENTRAL NERVOUS SYSTEM LYMPHOMA [None]
  - CENTRAL VENOUS CATHETER REMOVAL [None]
  - CHOLANGITIS CHRONIC [None]
  - CHOLECYSTECTOMY [None]
  - CHOLECYSTITIS ACUTE [None]
  - COLITIS [None]
  - CORONARY ARTERY DISEASE [None]
  - COSTOCHONDRITIS [None]
  - DECREASED APPETITE [None]
  - DEPRESSION [None]
  - DEVICE RELATED INFECTION [None]
  - DIARRHOEA [None]
  - DISABILITY [None]
  - EDENTULOUS [None]
  - ELECTROLYTE IMBALANCE [None]
  - ENCEPHALITIS POST MEASLES [None]
  - ENDODONTIC PROCEDURE [None]
  - ERYTHROPOIESIS ABNORMAL [None]
  - FALL [None]
  - FATIGUE [None]
  - FEMORAL NECK FRACTURE [None]
  - FOOD AVERSION [None]
  - FUNGAEMIA [None]
  - FUNGAL INFECTION [None]
  - GASTROENTERITIS [None]
  - GASTROOESOPHAGEAL REFLUX DISEASE [None]
  - GINGIVAL INFECTION [None]
  - GRANULOMATOUS LIVER DISEASE [None]
  - HEPATIC LESION [None]
  - HYPERTENSION [None]
  - HYPOCALCAEMIA [None]
  - HYPONATRAEMIA [None]
  - HYPOPHOSPHATAEMIA [None]
  - HYPOVOLAEMIA [None]
  - IMMUNOSUPPRESSION [None]
  - INJURY [None]
  - INTERVERTEBRAL DISC PROTRUSION [None]
  - IRON METABOLISM DISORDER [None]
  - JOINT INJECTION [None]
  - JOINT PROSTHESIS USER [None]
  - LEUKOPENIA [None]
  - LUMBAR SPINAL STENOSIS [None]
  - MALABSORPTION [None]
  - MALNUTRITION [None]
  - MENINGIOMA [None]
  - NARCOLEPSY [None]
  - NAUSEA [None]
  - NERVE ROOT LESION [None]
  - NODULE [None]
  - OEDEMA MOUTH [None]
  - OSTEOARTHRITIS [None]
  - OSTEONECROSIS OF JAW [None]
  - OSTEOPENIA [None]
  - PAIN [None]
  - PAIN IN JAW [None]
  - PALLOR [None]
  - PANCREATIC INSUFFICIENCY [None]
  - PANCYTOPENIA [None]
  - PATHOLOGICAL FRACTURE [None]
  - PERIODONTAL DISEASE [None]
  - PNEUMATOSIS INTESTINALIS [None]
  - POLYDIPSIA [None]
  - POLYURIA [None]
  - RENAL CYST [None]
  - RHABDOMYOLYSIS [None]
  - SACROILIITIS [None]
  - SCAR [None]
  - SHOULDER OPERATION [None]
  - SPINAL OSTEOARTHRITIS [None]
  - SPLENOMEGALY [None]
  - STEATORRHOEA [None]
  - STREPTOCOCCAL SEPSIS [None]
  - STRESS URINARY INCONTINENCE [None]
  - SYNOVIAL CYST [None]
  - TOOTH FRACTURE [None]
  - TOOTH LOSS [None]
  - TOOTHACHE [None]
  - TRACHEOBRONCHITIS [None]
  - TREMOR [None]
  - TYPE 1 DIABETES MELLITUS [None]
  - UMBILICAL HERNIA [None]
  - UMBILICAL HERNIA REPAIR [None]
  - UPPER RESPIRATORY TRACT INFECTION [None]
  - URINARY TRACT INFECTION [None]
  - VITAMIN D DEFICIENCY [None]
  - VOMITING [None]
